FAERS Safety Report 25333738 (Version 1)
Quarter: 2025Q2

REPORT INFORMATION
  Report Type: Report from Study
  Country: US (occurrence: US)
  Receive Date: 20250520
  Receipt Date: 20250520
  Transmission Date: 20250716
  Serious: Yes (Other)
  Sender: MALLINCKRODT
  Company Number: US-MALLINCKRODT-MNK202502009

PATIENT
  Age: 53 Year
  Sex: Female

DRUGS (1)
  1. CORTICOTROPIN [Suspect]
     Active Substance: CORTICOTROPIN
     Indication: Multiple sclerosis
     Dosage: 80 UNITS
     Route: 058
     Dates: start: 20250331

REACTIONS (11)
  - Hypertension [Not Recovered/Not Resolved]
  - Abdominal pain [Unknown]
  - Abdominal discomfort [Unknown]
  - Chest discomfort [Unknown]
  - Injection site pain [Recovered/Resolved]
  - Injection site erythema [Recovered/Resolved]
  - Injection site pruritus [Recovered/Resolved]
  - Injection site urticaria [Recovered/Resolved]
  - Abdominal distension [Unknown]
  - Peripheral swelling [Unknown]
  - Fluid retention [Unknown]

NARRATIVE: CASE EVENT DATE: 20250101
